FAERS Safety Report 15083733 (Version 2)
Quarter: 2018Q3

REPORT INFORMATION
  Report Type: Report from Study
  Country: US (occurrence: US)
  Receive Date: 20180628
  Receipt Date: 20180709
  Transmission Date: 20181010
  Serious: Yes (Death)
  Sender: FDA-Public Use
  Company Number: US-CLOVIS ONCOLOGY-CLO-2018-000685

PATIENT
  Age: 72 Year
  Sex: Female

DRUGS (1)
  1. RUBRACA [Suspect]
     Active Substance: RUCAPARIB CAMSYLATE
     Indication: COLON CANCER
     Dosage: 600 MG, BID
     Route: 048
     Dates: start: 20180530, end: 2018

REACTIONS (6)
  - Off label use [Unknown]
  - Malaise [Not Recovered/Not Resolved]
  - Malignant neoplasm progression [Fatal]
  - Decreased appetite [Unknown]
  - Diarrhoea [Unknown]
  - Asthenia [Unknown]

NARRATIVE: CASE EVENT DATE: 2018
